FAERS Safety Report 5001579-1 (Version None)
Quarter: 2006Q2

REPORT INFORMATION
  Report Type: 
  Country: None (occurrence: None)
  Receive Date: 20060510
  Receipt Date: 20060502
  Transmission Date: 20061013
  Serious: Yes (Hospitalization, Other)
  Sender: FDA-Public Use
  Company Number: 2006047512

PATIENT
  Sex: Female

DRUGS (12)
  1. XANAX [Suspect]
     Indication: INSOMNIA
     Dosage: (0.5 MG, 2 IN 1 D), ORAL
     Route: 048
  2. XANAX [Suspect]
     Indication: PANIC ATTACK
     Dosage: (0.5 MG, 2 IN 1 D), ORAL
     Route: 048
  3. ARICEPT [Suspect]
     Indication: DEMENTIA ALZHEIMER'S TYPE
     Dosage: 5 MG (5 MG, 1 IN 1 D)
     Dates: start: 20060201
  4. ZYPREXA [Suspect]
     Indication: DEPRESSION
     Dosage: 5 MG (2.5 MG, 2 IN 1 D), UNKNOWN
     Dates: start: 20030101
  5. EFFEXOR [Suspect]
     Indication: DEPRESSION
  6. ALUMINUM HYDROXIDE AND MAGNESIUM TRISILICATE [Suspect]
     Indication: NAUSEA
     Dates: start: 20050101
  7. MOBIC [Concomitant]
  8. DARVOCET (DEXTROPROPROXYPHENE NAPSILATE, PARACETAMOL) [Concomitant]
  9. AVALIDE [Concomitant]
  10. MICRO-K (POTASSIUM CHLORIDE) [Concomitant]
  11. NITROQUICK (GLYCERYL TRINITRATE) [Concomitant]
  12. BENTYL [Concomitant]

REACTIONS (15)
  - ANXIETY [None]
  - BLOOD POTASSIUM DECREASED [None]
  - BODY HEIGHT DECREASED [None]
  - CHOLECYSTECTOMY [None]
  - CRYING [None]
  - DEMENTIA ALZHEIMER'S TYPE [None]
  - DEPRESSION [None]
  - DIVERTICULITIS [None]
  - FAECES DISCOLOURED [None]
  - HEART RATE IRREGULAR [None]
  - NAUSEA [None]
  - ULCER [None]
  - UPPER LIMB FRACTURE [None]
  - URINARY TRACT INFECTION [None]
  - WEIGHT INCREASED [None]
